FAERS Safety Report 5410019-X (Version None)
Quarter: 2007Q3

REPORT INFORMATION
  Report Type: 
  Country: None (occurrence: None)
  Receive Date: 20070809
  Receipt Date: 20070731
  Transmission Date: 20080115
  Serious: Yes (Hospitalization)
  Sender: FDA-Public Use
  Company Number: DE-PURDUE-DEU_2003_0000526

PATIENT
  Age: 76 Year
  Sex: Female
  Weight: 77 kg

DRUGS (19)
  1. OXYCODON 5 MG VS PLACEBO [Suspect]
     Indication: DYSPNOEA
     Dosage: 10 MG, BID
     Route: 048
     Dates: start: 20030727, end: 20030731
  2. PROTAPHAN [Concomitant]
  3. NOVORAPID [Concomitant]
  4. BRONCHORETARD [Concomitant]
  5. PANTOPRAZOLE SODIUM [Concomitant]
  6. DECORTIN-H [Concomitant]
  7. AQUAPHOR [Concomitant]
  8. FUROSEMIDE [Concomitant]
  9. ACETYLSALICYLIC ACID SRT [Concomitant]
  10. ALLOPURINOL [Concomitant]
  11. COLECALCIFEROL [Concomitant]
  12. DIAMOX [Concomitant]
  13. NASAL SALINE [Concomitant]
  14. BERODUAL [Concomitant]
  15. SYMBICORT [Concomitant]
  16. LACTOSE [Concomitant]
  17. BEROTEC [Concomitant]
  18. EPIFRIN [Concomitant]
  19. LACTULOSE [Concomitant]

REACTIONS (5)
  - DIZZINESS [None]
  - NAUSEA [None]
  - PERIORBITAL HAEMATOMA [None]
  - SYNCOPE [None]
  - VOMITING [None]
